FAERS Safety Report 17701654 (Version 1)
Quarter: 2020Q2

REPORT INFORMATION
  Report Type: Other
  Country: US (occurrence: US)
  Receive Date: 20200424
  Receipt Date: 20200424
  Transmission Date: 20200714
  Serious: Yes (Hospitalization, Other)
  Sender: FDA-Public Use
  Company Number: US-APTAPHARMA INC.-2083096

PATIENT
  Age: 55 Year
  Sex: Male

DRUGS (1)
  1. IBUPROFEN. [Suspect]
     Active Substance: IBUPROFEN
     Indication: MYALGIA
     Route: 065

REACTIONS (4)
  - Gastric ulcer [Unknown]
  - Melaena [Recovered/Resolved]
  - Chronic gastrointestinal bleeding [Unknown]
  - Anaemia [Recovering/Resolving]
